FAERS Safety Report 18728493 (Version 3)
Quarter: 2021Q1

REPORT INFORMATION
  Report Type: Report from Study
  Country: None (occurrence: US)
  Receive Date: 20210111
  Receipt Date: 20210305
  Transmission Date: 20210419
  Serious: Yes (Other)
  Sender: FDA-Public Use
  Company Number: US-ABBVIE-21K-163-3721754-00

PATIENT
  Age: 58 Year
  Sex: Female
  Weight: 59.02 kg

DRUGS (1)
  1. RINVOQ [Suspect]
     Active Substance: UPADACITINIB
     Indication: RHEUMATOID ARTHRITIS
     Route: 048

REACTIONS (5)
  - Diarrhoea [Recovered/Resolved]
  - Staphylococcal infection [Not Recovered/Not Resolved]
  - Unevaluable event [Unknown]
  - Herpes zoster oticus [Recovered/Resolved]
  - Nasal herpes [Not Recovered/Not Resolved]

NARRATIVE: CASE EVENT DATE: 202009
